FAERS Safety Report 5747403-0 (Version None)
Quarter: 2008Q2

REPORT INFORMATION
  Report Type: 
  Country: None (occurrence: None)
  Receive Date: 20080523
  Receipt Date: 20080521
  Transmission Date: 20081010
  Serious: Yes (Hospitalization, Other)
  Sender: FDA-Public Use
  Company Number: PL-BRISTOL-MYERS SQUIBB COMPANY-14199335

PATIENT
  Age: 54 Year
  Sex: Male
  Weight: 70 kg

DRUGS (3)
  1. CISPLATIN [Suspect]
     Indication: NON-SMALL CELL LUNG CANCER
     Dosage: TOTAL DOSE : 130MG
     Route: 042
     Dates: start: 20060630, end: 20060811
  2. PF-3512676 [Suspect]
     Indication: NON-SMALL CELL LUNG CANCER
     Dosage: 13.5MG TOTAL DOSE. FREQUENCY: DAY 8-15 EVERY 21 DAYS
     Route: 058
     Dates: start: 20060707, end: 20060811
  3. GEMCITABINE [Suspect]
     Indication: NON-SMALL CELL LUNG CANCER
     Dosage: FREQUENCY: DAY 1-8 EVERY 21 DAYS, TOTAL DOSE: 2200
     Route: 042
     Dates: start: 20060630, end: 20060818

REACTIONS (3)
  - HYPOALBUMINAEMIA [None]
  - OEDEMA PERIPHERAL [None]
  - PANCYTOPENIA [None]
